FAERS Safety Report 20069931 (Version 1)
Quarter: 2021Q4

REPORT INFORMATION
  Report Type: Spontaneous
  Country: US (occurrence: None)
  Receive Date: 20211112
  Receipt Date: 20211112
  Transmission Date: 20220303
  Serious: Yes (Hospitalization)
  Sender: FDA-Public Use
  Company Number: None

PATIENT
  Sex: Male

DRUGS (9)
  1. HUMIRA [Suspect]
     Active Substance: ADALIMUMAB
     Indication: Rheumatoid arthritis
     Dosage: FREQUENCY : WEEKLY;?
     Route: 058
     Dates: start: 20180119
  2. AZELLASTINE [Concomitant]
  3. COLCHCINE [Concomitant]
  4. CYCLOBENZAPRINE [Concomitant]
     Active Substance: CYCLOBENZAPRINE
  5. FOLIC ACID [Concomitant]
     Active Substance: FOLIC ACID
  6. FUROSEMIDE [Concomitant]
     Active Substance: FUROSEMIDE
  7. SILFASALAZIN [Concomitant]
  8. TRULICITY [Concomitant]
     Active Substance: DULAGLUTIDE
  9. XIGDUO XR [Concomitant]
     Active Substance: DAPAGLIFLOZIN PROPANEDIOL\METFORMIN HYDROCHLORIDE

REACTIONS (2)
  - Therapy interrupted [None]
  - Surgery [None]
